FAERS Safety Report 17687675 (Version 1)
Quarter: 2020Q2

REPORT INFORMATION
  Report Type: Spontaneous
  Country: US (occurrence: US)
  Receive Date: 20200421
  Receipt Date: 20200421
  Transmission Date: 20200714
  Serious: Yes (Other)
  Sender: FDA-Public Use
  Company Number: US-STRIDES ARCOLAB LIMITED-2020SP004867

PATIENT
  Age: 2 Month
  Sex: Male
  Weight: 12 kg

DRUGS (5)
  1. BUPIVACAINE. [Suspect]
     Active Substance: BUPIVACAINE
     Indication: LOCAL ANAESTHESIA
     Dosage: 1.5 MILLILITER (A SINGLE?SHOT EXTRACONAL BLOCK)
     Route: 065
  2. LIDOCAINE. [Suspect]
     Active Substance: LIDOCAINE
     Indication: LOCAL ANAESTHESIA
     Dosage: 1.5 MILLILITER (A SINGLE?SHOT EXTRACONAL BLOCK)
     Route: 065
  3. BUPIVACAINE. [Suspect]
     Active Substance: BUPIVACAINE
     Indication: EYE EXCISION
     Dosage: 22.5 MILLIGRAM, TOTAL (REPEAT BLOCK)
     Route: 065
  4. HYALURONIDASE [Concomitant]
     Active Substance: HYALURONIDASE
     Indication: EYE EXCISION
     Dosage: 7.5 INTERNATIONAL UNIT PER MILLILITRE (TOTAL OF 3 ML)
     Route: 065
  5. LIDOCAINE. [Suspect]
     Active Substance: LIDOCAINE
     Indication: EYE EXCISION
     Dosage: 120 MILLIGRAM, TOTAL (REPEAT BLOCK)
     Route: 065

REACTIONS (7)
  - Electrocardiogram ST segment elevation [Recovered/Resolved]
  - Oxygen saturation decreased [Recovered/Resolved]
  - Overdose [Unknown]
  - Local anaesthetic systemic toxicity [Unknown]
  - Generalised tonic-clonic seizure [Recovered/Resolved]
  - Tachycardia [Unknown]
  - Agitation [Unknown]
